FAERS Safety Report 9897258 (Version 4)
Quarter: 2014Q2

REPORT INFORMATION
  Report Type: Report from Study
  Country: CN (occurrence: CN)
  Receive Date: 20140214
  Receipt Date: 20140404
  Transmission Date: 20141212
  Serious: Yes (Hospitalization, Other)
  Sender: FDA-Public Use
  Company Number: CN-ROCHE-1349074

PATIENT
  Age: 39 Year
  Sex: Male
  Weight: 45 kg

DRUGS (2)
  1. AVASTIN [Suspect]
     Indication: RECTAL CANCER METASTATIC
     Route: 042
     Dates: start: 20121023
  2. AVASTIN [Suspect]
     Route: 042
     Dates: start: 201306, end: 201311

REACTIONS (6)
  - Abdominal pain [Recovering/Resolving]
  - Intestinal obstruction [Recovering/Resolving]
  - Dysuria [Unknown]
  - Haemorrhage [Unknown]
  - Haematochezia [Unknown]
  - Disease progression [Unknown]
